FAERS Safety Report 8556683-8 (Version None)
Quarter: 2012Q3

REPORT INFORMATION
  Report Type: 
  Country: None (occurrence: None)
  Receive Date: 20120801
  Receipt Date: 20120723
  Transmission Date: 20120928
  Serious: Yes (Hospitalization, Other)
  Sender: FDA-Public Use
  Company Number: US-009507513-1207USA011218

PATIENT

DRUGS (8)
  1. PERINDOPRIL ERBUMINE [Suspect]
     Dosage: 1 DF, QD
     Route: 048
  2. TRILEPTAL [Suspect]
     Dosage: 300 MG, BID
     Route: 048
  3. ZOCOR [Suspect]
     Dosage: 40 MG, QD
     Route: 048
  4. LEVOTHYROXINE SODIUM [Concomitant]
     Dosage: 1 DF, QD
     Route: 048
  5. ESOMEPRAZOLE [Concomitant]
     Dosage: UNK, PRN
     Route: 048
  6. TENORMIN [Concomitant]
     Dosage: 1 DF, QD
     Route: 048
  7. TRILEPTAL [Suspect]
     Dosage: 300 MG, QD
     Route: 048
  8. ASPIRIN [Concomitant]
     Dosage: 1 DF, QD
     Route: 048

REACTIONS (4)
  - ANURIA [None]
  - HYPONATRAEMIA [None]
  - MYALGIA [None]
  - RHABDOMYOLYSIS [None]
